FAERS Safety Report 4321040-7 (Version None)
Quarter: 2004Q1

REPORT INFORMATION
  Report Type: 
  Country: None (occurrence: None)
  Receive Date: 20040318
  Receipt Date: 20040303
  Transmission Date: 20041129
  Serious: Yes (Death, Life-Threatening)
  Sender: FDA-Public Use
  Company Number: 2004IM000075

PATIENT
  Age: 54 Year
  Sex: Male

DRUGS (6)
  1. ADVAFERON (A643_INTERFERON AFACON-1) [Suspect]
     Indication: HEPATITIS C
     Dosage: 18 MU; QD; SUBCUTANEOUS
     Route: 058
     Dates: start: 20040105, end: 20040115
  2. URSODEOXYCHOLIC ACID [Concomitant]
  3. LIVACT [Concomitant]
  4. RABEPRAZOLE SODIUM [Concomitant]
  5. ETODOLAC [Concomitant]
  6. REBAMIPIDE [Concomitant]

REACTIONS (11)
  - ANURIA [None]
  - ARTHRALGIA [None]
  - BLOOD PRESSURE DECREASED [None]
  - DISSEMINATED INTRAVASCULAR COAGULATION [None]
  - FUNGAL INFECTION [None]
  - HAEMODIALYSIS [None]
  - LOBAR PNEUMONIA [None]
  - OXYGEN SATURATION DECREASED [None]
  - PLATELET COUNT DECREASED [None]
  - PNEUMONIA [None]
  - STAPHYLOCOCCAL INFECTION [None]
